FAERS Safety Report 23183067 (Version 1)
Quarter: 2023Q4

REPORT INFORMATION
  Report Type: Report from Study
  Country: US (occurrence: US)
  Receive Date: 20231114
  Receipt Date: 20231114
  Transmission Date: 20240109
  Serious: Yes (Other)
  Sender: FDA-Public Use
  Company Number: US-ALXN-A202309496AA

PATIENT
  Age: 69 Year
  Sex: Male
  Weight: 90.703 kg

DRUGS (1)
  1. ULTOMIRIS [Suspect]
     Active Substance: RAVULIZUMAB-CWVZ
     Indication: Myasthenia gravis
     Dosage: UNK
     Route: 065

REACTIONS (12)
  - Myasthenia gravis [Recovered/Resolved]
  - Therapeutic response shortened [Unknown]
  - Malaise [Unknown]
  - Decreased immune responsiveness [Unknown]
  - Diplopia [Unknown]
  - Dyspnoea [Unknown]
  - Lung disorder [Not Recovered/Not Resolved]
  - General physical health deterioration [Unknown]
  - Productive cough [Not Recovered/Not Resolved]
  - Headache [Recovered/Resolved]
  - Asthenia [Unknown]
  - Nasopharyngitis [Unknown]
